FAERS Safety Report 22628543 (Version 2)
Quarter: 2023Q2

REPORT INFORMATION
  Report Type: Spontaneous
  Country: IN (occurrence: IN)
  Receive Date: 20230622
  Receipt Date: 20230629
  Transmission Date: 20230722
  Serious: Yes (Death, Life-Threatening)
  Sender: FDA-Public Use
  Company Number: IN-GE HEALTHCARE-2023CSU004927

PATIENT
  Age: 53 Year
  Sex: Male
  Weight: 53 kg

DRUGS (5)
  1. OMNISCAN [Suspect]
     Active Substance: GADODIAMIDE
     Indication: Magnetic resonance imaging head
     Dosage: 9 ML, SINGLE
     Route: 042
     Dates: start: 20230616, end: 20230616
  2. OMNISCAN [Suspect]
     Active Substance: GADODIAMIDE
     Indication: Diabetes mellitus
  3. OMNISCAN [Suspect]
     Active Substance: GADODIAMIDE
     Indication: Hypertension
  4. OMNISCAN [Suspect]
     Active Substance: GADODIAMIDE
     Indication: Cerebrovascular accident
  5. OMNISCAN [Suspect]
     Active Substance: GADODIAMIDE
     Indication: Cerebrovascular accident

REACTIONS (7)
  - Cardiac arrest [Fatal]
  - Respiratory arrest [Not Recovered/Not Resolved]
  - Oxygen saturation decreased [Not Recovered/Not Resolved]
  - Depressed level of consciousness [Not Recovered/Not Resolved]
  - Bradycardia [Not Recovered/Not Resolved]
  - Disorientation [Not Recovered/Not Resolved]
  - Dyspnoea [Not Recovered/Not Resolved]

NARRATIVE: CASE EVENT DATE: 20230616
